FAERS Safety Report 5492934-4 (Version None)
Quarter: 2007Q4

REPORT INFORMATION
  Report Type: 
  Country: None (occurrence: None)
  Receive Date: 20071023
  Receipt Date: 20071016
  Transmission Date: 20080405
  Serious: Yes (Other)
  Sender: FDA-Public Use
  Company Number: US-BAYER-200713367BCC

PATIENT
  Age: 69 Year
  Sex: Male
  Weight: 68 kg

DRUGS (4)
  1. ALEVE LIQUID GELS [Suspect]
     Indication: ARTHRALGIA
     Dosage: UNIT DOSE: 220 MG
     Route: 048
     Dates: start: 20070801
  2. ALEVE LIQUID GELS [Suspect]
     Route: 048
     Dates: start: 20071012
  3. ZOLOFT [Concomitant]
  4. ULTRAM [Concomitant]

REACTIONS (4)
  - FEELING ABNORMAL [None]
  - INSOMNIA [None]
  - SELF-INJURIOUS IDEATION [None]
  - TREMOR [None]
